FAERS Safety Report 10189687 (Version 1)
Quarter: 2014Q2

REPORT INFORMATION
  Report Type: Report from Study
  Country: US (occurrence: US)
  Receive Date: 20140522
  Receipt Date: 20140522
  Transmission Date: 20141212
  Serious: Yes (Hospitalization)
  Sender: FDA-Public Use
  Company Number: US-B.I. PHARMACEUTICALS,INC./RIDGEFIELD-2014-BI-21909BI

PATIENT
  Age: 82 Year
  Sex: Male
  Weight: 85.6 kg

DRUGS (19)
  1. DABIGATRAN [Suspect]
     Indication: ATRIAL FIBRILLATION
     Dosage: 300 MG
     Route: 048
     Dates: start: 20130710, end: 20130907
  2. PROVENTIL [Concomitant]
     Indication: CHRONIC OBSTRUCTIVE PULMONARY DISEASE
     Dosage: FORMULATION: NEBULIZER, DOSE PER APPLICATION: 2.5 MG/3ML (0.083% SOLUTION)
     Route: 055
     Dates: start: 20130805
  3. ZYLOPRIM [Concomitant]
     Indication: GOUT
     Dosage: 100 MG
     Route: 048
     Dates: start: 20130710
  4. NORVASC [Concomitant]
     Indication: HYPERTENSION
     Dosage: 5 MG
     Route: 048
     Dates: start: 20130710
  5. LIPITOR [Concomitant]
     Indication: HYPERCHOLESTEROLAEMIA
     Dosage: 40 MG
     Route: 048
     Dates: start: 20130710
  6. LIORESAL [Concomitant]
     Indication: MUSCLE RELAXANT THERAPY
     Dosage: 30 MG
     Route: 048
     Dates: start: 20130830
  7. CALCIUM 600 [Concomitant]
     Indication: SUPPLEMENTATION THERAPY
     Dosage: 1200 MG
     Route: 048
     Dates: start: 20130710
  8. COLCHICINE [Concomitant]
     Indication: GOUT
     Dosage: 0.6 MG
     Route: 048
     Dates: start: 20130710
  9. BENTYL [Concomitant]
     Indication: MUSCLE RELAXANT THERAPY
     Dosage: 30 MG
     Route: 048
     Dates: start: 20130710
  10. COLACE [Concomitant]
     Indication: CONSTIPATION
     Dosage: 100 MG
     Route: 048
     Dates: start: 20130710
  11. CARDURA [Concomitant]
     Indication: HYPERTENSION
     Dosage: 2 MG
     Route: 048
     Dates: start: 20130710
  12. NEXIUM [Concomitant]
     Indication: DYSPEPSIA
     Dosage: 40 MG
     Route: 048
     Dates: start: 20130710
  13. ADVAIR [Concomitant]
     Indication: ASTHMA
     Dosage: FORMULATION: INHALER, DOSE PER APPLICATION : 500-50 MCG/DOSE 1 PUFF
     Route: 055
     Dates: start: 20130710
  14. LASIX [Concomitant]
     Indication: CARDIAC FAILURE CONGESTIVE
     Dosage: 160 MG
     Route: 048
     Dates: start: 20130710
  15. TOPROL-XL [Concomitant]
     Indication: HYPERTENSION
     Dosage: 100 MG
     Route: 048
     Dates: start: 20130710
  16. MIRALAX [Concomitant]
     Indication: CONSTIPATION
     Dosage: 1 ANZ
     Route: 048
     Dates: start: 20130710
  17. SENNA [Concomitant]
     Indication: CONSTIPATION
     Dosage: 17.2 MG
     Route: 048
     Dates: start: 20130710
  18. SPIRIVA [Concomitant]
     Indication: CHRONIC OBSTRUCTIVE PULMONARY DISEASE
     Dosage: 18 MCG
     Route: 055
     Dates: start: 20130710
  19. ULTRAM [Concomitant]
     Indication: PAIN
     Dosage: 200 MG
     Route: 048
     Dates: start: 20130710

REACTIONS (1)
  - Rectal haemorrhage [Recovered/Resolved]
